FAERS Safety Report 4549402-3 (Version None)
Quarter: 2005Q1

REPORT INFORMATION
  Report Type: 
  Country: None (occurrence: None)
  Receive Date: 20050110
  Receipt Date: 20050110
  Transmission Date: 20050727
  Serious: Yes (Other)
  Sender: FDA-Public Use
  Company Number: None

PATIENT
  Sex: Male
  Weight: 95.2554 kg

DRUGS (6)
  1. CORRECTOL [Suspect]
     Indication: CONSTIPATION
     Dosage: ORAL
     Route: 048
  2. EX-LAX [Suspect]
     Indication: DRUG USE FOR UNKNOWN INDICATION
     Route: 065
  3. DOXYCYCLINE [Concomitant]
  4. KEFLEX [Concomitant]
  5. FLAGYL [Concomitant]
  6. BENTYL [Concomitant]

REACTIONS (3)
  - DRUG DEPENDENCE [None]
  - EXPOSURE TO TOXIC AGENT [None]
  - REFUSAL OF TREATMENT BY PATIENT [None]
